FAERS Safety Report 4340162-8 (Version None)
Quarter: 2004Q2

REPORT INFORMATION
  Report Type: 
  Country: None (occurrence: None)
  Receive Date: 20040416
  Receipt Date: 20040416
  Transmission Date: 20050107
  Serious: Yes (Other)
  Sender: FDA-Public Use
  Company Number: None

PATIENT
  Age: 14 Year
  Sex: Female
  Weight: 86.1834 kg

DRUGS (4)
  1. RISPERIDONE [Suspect]
     Indication: BIPOLAR DISORDER
     Dosage: 0.5 MG PO QAM 1.5 MG PO QHS
     Route: 048
  2. ARIPIPRAZOLE [Concomitant]
  3. LAMOTRIGINE [Concomitant]
  4. ALBUTEROL [Concomitant]

REACTIONS (1)
  - LACTATION DISORDER [None]
